FAERS Safety Report 15253592 (Version 1)
Quarter: 2018Q3

REPORT INFORMATION
  Report Type: Report from Study
  Country: JP (occurrence: JP)
  Receive Date: 20180808
  Receipt Date: 20180808
  Transmission Date: 20181010
  Serious: Yes (Other)
  Sender: FDA-Public Use
  Company Number: JP-CELLTRION INC.-2018JP021664

PATIENT

DRUGS (22)
  1. PROMAC                             /01312301/ [Concomitant]
     Active Substance: POLAPREZINC
     Indication: OSTEOPOROSIS
     Dosage: 1 G/DAY
     Dates: start: 20161226
  2. LYRICA [Concomitant]
     Active Substance: PREGABALIN
     Indication: RHEUMATOID ARTHRITIS
     Dosage: 75 MG/DAY
     Dates: start: 20180122, end: 20180209
  3. TRAVELMIN                          /00517301/ [Concomitant]
     Indication: PROPHYLAXIS
     Dosage: 3 DF/DAY
     Dates: start: 20180122, end: 20180209
  4. INFLIXIMAB BS FOR I.V. INFUSION100 MG [NK] [Suspect]
     Active Substance: INFLIXIMAB
     Dosage: 150 MG/BODY/DAY
     Route: 042
     Dates: start: 20180209, end: 20180209
  5. GLAKAY [Concomitant]
     Active Substance: MENATETRENONE
     Indication: OSTEOPOROSIS
     Dosage: 45 MG/DAY
     Dates: start: 20180703
  6. INFLIXIMAB BS FOR I.V. INFUSION100 MG [NK] [Suspect]
     Active Substance: INFLIXIMAB
     Dosage: 150 MG/BODY/DAY
     Route: 042
     Dates: start: 20170710, end: 20170710
  7. INFLIXIMAB BS FOR I.V. INFUSION100 MG [NK] [Suspect]
     Active Substance: INFLIXIMAB
     Dosage: 150 MG/BODY/DAY
     Route: 042
     Dates: start: 20180710, end: 20180710
  8. METOLATE [Concomitant]
     Active Substance: METHOTREXATE
     Indication: RHEUMATOID ARTHRITIS
     Dosage: 16 MG, 1/WEEK
  9. PRALIA [Concomitant]
     Active Substance: DENOSUMAB
     Indication: OSTEOPOROSIS
     Dosage: 60 MG/DAY
     Dates: start: 20170904
  10. INFLIXIMAB BS FOR I.V. INFUSION100 MG [NK] [Suspect]
     Active Substance: INFLIXIMAB
     Dosage: 150 MG/BODY/DAY
     Route: 042
     Dates: start: 20180416, end: 20180416
  11. CALFINA [Concomitant]
     Active Substance: ALFACALCIDOL
     Indication: OSTEOPOROSIS
     Dosage: 0.5  ?G/DAY
     Dates: start: 20170905
  12. INFLIXIMAB BS FOR I.V. INFUSION100 MG [NK] [Suspect]
     Active Substance: INFLIXIMAB
     Dosage: 150 MG/BODY/DAY
     Route: 042
     Dates: start: 20171002, end: 20171002
  13. INFLIXIMAB BS FOR I.V. INFUSION100 MG [NK] [Suspect]
     Active Substance: INFLIXIMAB
     Dosage: 150 MG/BODY/DAY
     Route: 042
     Dates: start: 20171127, end: 20171127
  14. ALFAROL [Concomitant]
     Active Substance: ALFACALCIDOL
     Indication: OSTEOPOROSIS
     Dosage: 0.25 ?G/DAY
     Dates: start: 20161205, end: 20170904
  15. FORTEO [Concomitant]
     Active Substance: TERIPARATIDE
     Indication: OSTEOPOROSIS
     Dosage: 20  ?G/DAY
     Dates: start: 20161205, end: 20170903
  16. INFLIXIMAB BS FOR I.V. INFUSION100 MG [NK] [Suspect]
     Active Substance: INFLIXIMAB
     Dosage: 150 MG/BODY/DAY
     Route: 042
     Dates: start: 20170807, end: 20170807
  17. FOLIAMIN [Concomitant]
     Active Substance: FOLIC ACID
     Indication: PROPHYLAXIS
     Dosage: 5 MG/DAY
     Dates: start: 20161107
  18. PYDOXAL [Concomitant]
     Active Substance: PYRIDOXAL
     Indication: PROPHYLAXIS
     Dosage: 30 MG/DAY
     Dates: start: 20170626, end: 20180416
  19. INFLIXIMAB BS FOR I.V. INFUSION100 MG [NK] [Suspect]
     Active Substance: INFLIXIMAB
     Indication: RHEUMATOID ARTHRITIS
     Dosage: 150 MG/BODY/DAY
     Route: 042
     Dates: start: 20170626, end: 20170626
  20. METOLATE [Concomitant]
     Active Substance: METHOTREXATE
     Dosage: 10 MG, 1/WEEK
     Dates: start: 20180710
  21. ISONARIF [Concomitant]
     Active Substance: ISONIAZID\RIFAMPIN
     Indication: ANTIBIOTIC PROPHYLAXIS
     Dosage: 300 MG/DAY
     Dates: start: 20170626, end: 20180416
  22. THYRADIN S [Concomitant]
     Active Substance: LEVOTHYROXINE SODIUM
     Indication: HYPOTHYROIDISM
     Dosage: 25 ?G/DAY
     Dates: start: 20180209

REACTIONS (5)
  - Rubella [Recovered/Resolved]
  - Inappropriate schedule of drug administration [Unknown]
  - Neurogenic bladder [Recovering/Resolving]
  - Cystitis [Recovered/Resolved]
  - Trigger finger [Recovered/Resolved]

NARRATIVE: CASE EVENT DATE: 20180105
